FAERS Safety Report 6147049-9 (Version None)
Quarter: 2009Q2

REPORT INFORMATION
  Report Type: 
  Country: None (occurrence: None)
  Receive Date: 20090402
  Receipt Date: 20090323
  Transmission Date: 20091009
  Serious: Yes (Hospitalization)
  Sender: FDA-Public Use
  Company Number: 228935

PATIENT
  Age: 7 Year
  Sex: Female
  Weight: 39 kg

DRUGS (6)
  1. ACYCLOVIR [Suspect]
     Indication: HERPES ZOSTER
     Dosage: 500 MG/M2, 3 TIMES DAILY, INTRAVENOUS
     Route: 042
     Dates: start: 20090307
  2. (CO-TRIMOXAZOLE) [Concomitant]
  3. DEXAMETHASONE TAB [Concomitant]
  4. MERCAPTOPURINE [Concomitant]
  5. METHOTREXATE [Concomitant]
  6. (VINCRISTINE) [Concomitant]

REACTIONS (3)
  - HYPERTENSION [None]
  - PYREXIA [None]
  - RENAL FAILURE ACUTE [None]
